FAERS Safety Report 6156509-6 (Version None)
Quarter: 2009Q2

REPORT INFORMATION
  Report Type: 
  Country: None (occurrence: None)
  Receive Date: 20090413
  Receipt Date: 20090224
  Transmission Date: 20091009
  Serious: Yes (Death, Other)
  Sender: FDA-Public Use
  Company Number: OPIR20090006

PATIENT
  Age: 32 Year
  Sex: Female
  Weight: 63.5036 kg

DRUGS (5)
  1. OPANA [Suspect]
     Dates: end: 20090101
  2. ALCOHOL [Suspect]
     Dates: end: 20090101
  3. CANNABINOID [Suspect]
     Dates: end: 20090101
  4. OXYCODONE HCL [Suspect]
     Dates: end: 20090101
  5. OLANZAPINE [Suspect]
     Dates: end: 20090101

REACTIONS (10)
  - ACCIDENTAL DEATH [None]
  - ACCIDENTAL OVERDOSE [None]
  - ASPIRATION [None]
  - BRONCHIOLITIS [None]
  - CALCINOSIS [None]
  - CARDIO-RESPIRATORY ARREST [None]
  - CONTUSION [None]
  - GOITRE [None]
  - HEPATITIS C [None]
  - PULMONARY OEDEMA [None]
